FAERS Safety Report 6413683-1 (Version None)
Quarter: 2009Q4

REPORT INFORMATION
  Report Type: 
  Country: None (occurrence: None)
  Receive Date: 20091026
  Receipt Date: 20090923
  Transmission Date: 20100525
  Serious: No
  Sender: FDA-Public Use
  Company Number: US-BAYER-200934247NA

PATIENT
  Age: 40 Year
  Sex: Female

DRUGS (2)
  1. MIRENA [Suspect]
     Indication: MENSTRUAL DISORDER
     Dosage: CONTINUOUS
     Route: 015
     Dates: start: 20090901, end: 20090910
  2. MIRENA [Suspect]
     Dosage: CONTINUOUS
     Route: 015
     Dates: start: 20090910

REACTIONS (2)
  - DYSPAREUNIA [None]
  - MEDICAL DEVICE COMPLICATION [None]
